FAERS Safety Report 24677524 (Version 1)
Quarter: 2024Q4

REPORT INFORMATION
  Report Type: Spontaneous
  Country: US (occurrence: US)
  Receive Date: 20241129
  Receipt Date: 20241129
  Transmission Date: 20250115
  Serious: Yes (Other)
  Sender: SANOFI AVENTIS
  Company Number: US-SA-2024SA346256

PATIENT
  Sex: Female

DRUGS (52)
  1. TAXOTERE [Suspect]
     Active Substance: DOCETAXEL
     Indication: Breast cancer female
     Dosage: 120 MG, Q3W
     Route: 042
     Dates: start: 20200416
  2. TAXOTERE [Suspect]
     Active Substance: DOCETAXEL
     Dosage: 90 MG
     Route: 042
     Dates: start: 20200514
  3. TAXOTERE [Suspect]
     Active Substance: DOCETAXEL
     Dosage: 100 MG
     Route: 042
     Dates: start: 20200604
  4. TAXOTERE [Suspect]
     Active Substance: DOCETAXEL
     Dosage: 114 MG
     Route: 042
     Dates: start: 20200625
  5. TAXOTERE [Suspect]
     Active Substance: DOCETAXEL
     Dosage: 100 MG
     Route: 042
     Dates: start: 20200715
  6. TAXOTERE [Suspect]
     Active Substance: DOCETAXEL
     Dosage: 100 MG
     Route: 042
     Dates: start: 20200805
  7. HERCEPTIN [Suspect]
     Active Substance: TRASTUZUMAB
     Indication: Breast cancer female
     Dosage: 750.000MG
     Route: 042
     Dates: start: 20200416
  8. HERCEPTIN [Suspect]
     Active Substance: TRASTUZUMAB
     Dosage: 600.000MG
     Route: 042
     Dates: start: 20200514
  9. HERCEPTIN [Suspect]
     Active Substance: TRASTUZUMAB
     Dosage: 600.000MG
     Route: 042
     Dates: start: 20200604
  10. HERCEPTIN [Suspect]
     Active Substance: TRASTUZUMAB
     Dosage: 600.000MG
     Route: 042
     Dates: start: 20200625
  11. HERCEPTIN [Suspect]
     Active Substance: TRASTUZUMAB
     Dosage: 600.000MG
     Route: 042
     Dates: start: 20200715
  12. HERCEPTIN [Suspect]
     Active Substance: TRASTUZUMAB
     Dosage: 600.000MG
     Route: 042
     Dates: start: 20200805
  13. HERCEPTIN [Suspect]
     Active Substance: TRASTUZUMAB
     Dosage: 600.000MG
     Route: 042
     Dates: start: 20200826
  14. HERCEPTIN [Suspect]
     Active Substance: TRASTUZUMAB
     Dosage: 600.000MG
     Route: 042
     Dates: start: 20200916
  15. HERCEPTIN [Suspect]
     Active Substance: TRASTUZUMAB
     Dosage: 600.000MG
     Route: 042
     Dates: start: 20200826
  16. HERCEPTIN [Suspect]
     Active Substance: TRASTUZUMAB
     Dosage: 600.000MG
     Route: 042
     Dates: start: 20201007
  17. HERCEPTIN [Suspect]
     Active Substance: TRASTUZUMAB
     Dosage: 600.000MG
     Route: 042
     Dates: start: 20201028
  18. HERCEPTIN [Suspect]
     Active Substance: TRASTUZUMAB
     Dosage: 600.000MG
     Route: 042
     Dates: start: 20201118
  19. HERCEPTIN [Suspect]
     Active Substance: TRASTUZUMAB
     Dosage: 600.000MG
     Route: 042
     Dates: start: 20201209
  20. HERCEPTIN [Suspect]
     Active Substance: TRASTUZUMAB
     Dosage: 600.000MG
     Route: 042
     Dates: start: 20201230
  21. HERCEPTIN [Suspect]
     Active Substance: TRASTUZUMAB
     Dosage: 600.000MG
     Route: 042
     Dates: start: 20210120
  22. HERCEPTIN [Suspect]
     Active Substance: TRASTUZUMAB
     Dosage: 600.000MG
     Route: 042
     Dates: start: 20210210
  23. HERCEPTIN [Suspect]
     Active Substance: TRASTUZUMAB
     Dosage: 600.000MG
     Route: 042
     Dates: start: 20210303
  24. HERCEPTIN [Suspect]
     Active Substance: TRASTUZUMAB
     Dosage: 600.000MG
     Route: 042
     Dates: start: 20210303
  25. HERCEPTIN [Suspect]
     Active Substance: TRASTUZUMAB
     Dosage: 600.000MG
     Route: 042
     Dates: start: 20210324
  26. HERCEPTIN [Suspect]
     Active Substance: TRASTUZUMAB
     Dosage: 600.000MG
     Route: 042
     Dates: start: 20210414
  27. HERCEPTIN [Suspect]
     Active Substance: TRASTUZUMAB
     Dosage: 600.000MG
     Route: 042
     Dates: start: 20210505
  28. HERCEPTIN [Suspect]
     Active Substance: TRASTUZUMAB
     Dosage: 600.000MG
     Route: 042
     Dates: start: 20210526
  29. HERCEPTIN [Suspect]
     Active Substance: TRASTUZUMAB
     Dosage: 600.000MG
     Route: 042
     Dates: start: 20210616
  30. HERCEPTIN [Suspect]
     Active Substance: TRASTUZUMAB
     Dosage: 600.000MG
     Route: 042
     Dates: start: 20210708
  31. HERCEPTIN [Suspect]
     Active Substance: TRASTUZUMAB
     Dosage: 600.000MG
     Route: 042
     Dates: start: 20210729
  32. HERCEPTIN [Suspect]
     Active Substance: TRASTUZUMAB
     Dosage: 600.000MG
     Route: 042
     Dates: start: 20210818
  33. HERCEPTIN [Suspect]
     Active Substance: TRASTUZUMAB
     Dosage: 600.000MG
     Route: 042
     Dates: start: 20210908
  34. HERCEPTIN [Suspect]
     Active Substance: TRASTUZUMAB
     Dosage: 600.000MG
     Route: 042
     Dates: start: 20210929
  35. HERCEPTIN [Suspect]
     Active Substance: TRASTUZUMAB
     Dosage: 600.000MG
     Route: 042
     Dates: start: 20211020
  36. HERCEPTIN [Suspect]
     Active Substance: TRASTUZUMAB
     Dosage: 600.000MG
     Route: 042
     Dates: start: 20211110
  37. HERCEPTIN [Suspect]
     Active Substance: TRASTUZUMAB
     Dosage: 600.000MG
     Route: 042
     Dates: start: 20211110
  38. HERCEPTIN [Suspect]
     Active Substance: TRASTUZUMAB
     Dosage: 600.000MG
     Route: 042
     Dates: end: 20211201
  39. PERJETA [Suspect]
     Active Substance: PERTUZUMAB
     Indication: Breast cancer female
     Dosage: 840 MG Q3W) 840 MG IN SODIUM CHLORIDE   (NS) 0.9 % 250 ML WPB, 840 MG, INTRAVENOUS, ONCE,   14 OF 15
     Route: 042
     Dates: start: 20200416
  40. PERJETA [Suspect]
     Active Substance: PERTUZUMAB
     Dosage: 420.000MG
     Dates: start: 20200514
  41. PERJETA [Suspect]
     Active Substance: PERTUZUMAB
     Dosage: 420.000MG
     Dates: start: 20200604
  42. PERJETA [Suspect]
     Active Substance: PERTUZUMAB
     Dosage: 420.000MG
     Dates: start: 20200625
  43. PERJETA [Suspect]
     Active Substance: PERTUZUMAB
     Dosage: 420.000MG
     Dates: start: 20200715
  44. PERJETA [Suspect]
     Active Substance: PERTUZUMAB
     Dosage: 420.000MG
     Dates: start: 20200508
  45. PERJETA [Suspect]
     Active Substance: PERTUZUMAB
     Dosage: 420.000MG
     Dates: start: 20200826
  46. PERJETA [Suspect]
     Active Substance: PERTUZUMAB
     Dosage: 420.000MG
     Dates: start: 20200916
  47. PERJETA [Suspect]
     Active Substance: PERTUZUMAB
     Dosage: 420.000MG
     Dates: start: 20201007
  48. PERJETA [Suspect]
     Active Substance: PERTUZUMAB
     Dosage: 840.000MG
     Dates: start: 20210908
  49. PERJETA [Suspect]
     Active Substance: PERTUZUMAB
     Dosage: 420.000MG
     Dates: start: 20210929
  50. PERJETA [Suspect]
     Active Substance: PERTUZUMAB
     Dosage: 420.000MG
     Dates: start: 20211020
  51. PERJETA [Suspect]
     Active Substance: PERTUZUMAB
     Dosage: 420.000MG
     Dates: start: 20211110
  52. PERJETA [Suspect]
     Active Substance: PERTUZUMAB
     Dosage: 420.000MG
     Dates: end: 20211201

REACTIONS (6)
  - Metastases to central nervous system [Unknown]
  - Metastases to meninges [Unknown]
  - Neuropathy peripheral [Unknown]
  - Lumbar radiculopathy [Unknown]
  - Peroneal nerve palsy [Unknown]
  - Back pain [Unknown]

NARRATIVE: CASE EVENT DATE: 20211201
